FAERS Safety Report 4831903-1 (Version None)
Quarter: 2005Q4

REPORT INFORMATION
  Report Type: 
  Country: None (occurrence: None)
  Receive Date: 20051118
  Receipt Date: 20050726
  Transmission Date: 20060501
  Serious: Yes (Other)
  Sender: FDA-Public Use
  Company Number: US-ROCHE-412202

PATIENT
  Age: 41 Year
  Sex: Male
  Weight: 57.6 kg

DRUGS (6)
  1. FUZEON [Suspect]
     Route: 058
     Dates: start: 20050409
  2. COUMADIN [Interacting]
     Indication: THROMBOSIS PROPHYLAXIS
     Route: 048
     Dates: end: 20050718
  3. COUMADIN [Interacting]
     Route: 048
     Dates: start: 20050725
  4. KALETRA [Interacting]
     Indication: DRUG USE FOR UNKNOWN INDICATION
     Route: 065
  5. FLOLAN [Concomitant]
     Indication: PULMONARY HYPERTENSION
     Route: 042
  6. NUBAIN [Concomitant]

REACTIONS (1)
  - DRUG INTERACTION [None]
